FAERS Safety Report 8587185 (Version 2)
Quarter: 2013Q2

REPORT INFORMATION
  Report Type: Spontaneous
  Country: US (occurrence: US)
  Receive Date: 20120530
  Receipt Date: 20130425
  Transmission Date: 20140414
  Serious: Yes (Hospitalization, Other)
  Sender: FDA-Public Use
  Company Number: US-ABBOTT-12P-163-0936967-00

PATIENT
  Age: 64 Year
  Sex: Female
  Weight: 61.06 kg

DRUGS (7)
  1. VICODIN [Suspect]
     Indication: PRODUCT USED FOR UNKNOWN INDICATION
     Route: 048
     Dates: end: 20120301
  2. ERLOTINIB [Suspect]
     Indication: PAIN
  3. COLACE [Concomitant]
     Indication: CONSTIPATION
     Dates: end: 20120301
  4. MIRALAX [Concomitant]
     Indication: CONSTIPATION
  5. EXCEDRIN [Concomitant]
     Indication: PAIN
     Dates: end: 20120301
  6. FENTANYL [Concomitant]
     Indication: PAIN
     Dates: end: 20120301
  7. FOLIC ACID [Concomitant]
     Indication: PRODUCT USED FOR UNKNOWN INDICATION
     Dates: end: 20120301

REACTIONS (6)
  - Troponin increased [Unknown]
  - Pericardial effusion [Unknown]
  - Constipation [Recovered/Resolved]
  - Non-small cell lung cancer [Unknown]
  - Lung disorder [Unknown]
  - Hilar lymphadenopathy [Unknown]
